FAERS Safety Report 5454980-6 (Version None)
Quarter: 2007Q3

REPORT INFORMATION
  Report Type: 
  Country: None (occurrence: None)
  Receive Date: 20070917
  Receipt Date: 20070905
  Transmission Date: 20080115
  Serious: Yes (Other)
  Sender: FDA-Public Use
  Company Number: AR-PFIZER INC-2007075081

PATIENT
  Sex: Male

DRUGS (3)
  1. LYRICA [Suspect]
     Indication: POST HERPETIC NEURALGIA
     Route: 048
  2. SINTROM [Concomitant]
     Route: 048
  3. GABAPENTIN [Concomitant]
     Route: 048

REACTIONS (1)
  - INTERNATIONAL NORMALISED RATIO DECREASED [None]
